FAERS Safety Report 5072522-4 (Version None)
Quarter: 2006Q3

REPORT INFORMATION
  Report Type: 
  Country: None (occurrence: None)
  Receive Date: 20060807
  Receipt Date: 20060707
  Transmission Date: 20061208
  Serious: Yes (Death)
  Sender: FDA-Public Use
  Company Number: US-BRISTOL-MYERS SQUIBB COMPANY-13435912

PATIENT
  Age: 61 Year
  Sex: Male

DRUGS (9)
  1. COUMADIN [Suspect]
     Indication: CORONARY ARTERY DISEASE
     Route: 048
     Dates: start: 19970101, end: 20060628
  2. MONOPRIL [Concomitant]
  3. LANTUS [Concomitant]
  4. TOPROL-XL [Concomitant]
  5. PLAVIX [Concomitant]
  6. PRILOSEC [Concomitant]
  7. NOVOLOG [Concomitant]
  8. LASIX [Concomitant]
  9. IMDUR [Concomitant]

REACTIONS (1)
  - MYOCARDIAL INFARCTION [None]
